FAERS Safety Report 8542353-9 (Version None)
Quarter: 2012Q3

REPORT INFORMATION
  Report Type: 
  Country: None (occurrence: None)
  Receive Date: 20120726
  Receipt Date: 20110920
  Transmission Date: 20120928
  Serious: Yes (Other)
  Sender: FDA-Public Use
  Company Number: US-ASTRAZENECA-2011SE56467

PATIENT
  Age: 719 Month
  Sex: Male
  Weight: 70.8 kg

DRUGS (6)
  1. MIRTAZAPINE [Concomitant]
  2. SEROQUEL [Suspect]
     Indication: DEMENTIA
     Route: 048
     Dates: start: 20110301
  3. RISPERIDONE [Concomitant]
  4. PLAVIX [Concomitant]
  5. CYMBALTA [Concomitant]
  6. NORVASC [Concomitant]

REACTIONS (2)
  - CEREBROVASCULAR ACCIDENT [None]
  - DRUG PRESCRIBING ERROR [None]
